FAERS Safety Report 5672779-2 (Version None)
Quarter: 2008Q1

REPORT INFORMATION
  Report Type: 
  Country: None (occurrence: None)
  Receive Date: 20080319
  Receipt Date: 20071005
  Transmission Date: 20080703
  Serious: No
  Sender: FDA-Public Use
  Company Number: US-KINGPHARMUSA00001-K200701299

PATIENT

DRUGS (11)
  1. ALTACE [Suspect]
     Indication: STENT PLACEMENT
     Dosage: 5 MG, QD
     Route: 048
     Dates: start: 20070201
  2. NEXIUM [Concomitant]
     Dosage: 40 MG, QD
     Route: 048
  3. PLAVIX [Concomitant]
     Dosage: 75 MG, QD
     Route: 048
  4. LEVOXYL [Concomitant]
     Dosage: 125 MCG, BIW
     Route: 048
  5. LEVOXYL [Concomitant]
     Dosage: 65 MCG, 5 TIMES A WEEK
     Route: 048
  6. NASACORT [Concomitant]
     Dosage: 2 SPRAYS, QD
     Route: 045
  7. ZETIA [Concomitant]
     Dosage: 10 MG, QD
     Route: 048
  8. AMITRIPTYLINE HCL [Concomitant]
     Indication: ANXIETY
     Dosage: 20 MG, QHS
     Route: 048
  9. CRESTOR [Concomitant]
     Indication: BLOOD CHOLESTEROL INCREASED
     Dosage: 40 MG, QD
     Route: 048
  10. LEXAPRO [Concomitant]
     Dosage: 10 MG, QD
     Route: 048
     Dates: start: 20071001
  11. LOTEMAX [Concomitant]
     Indication: IRITIS
     Dosage: ONE DROP, Q2H
     Dates: start: 20071001

REACTIONS (2)
  - BLOOD CREATININE INCREASED [None]
  - GLOMERULAR FILTRATION RATE DECREASED [None]
